FAERS Safety Report 21719267 (Version 2)
Quarter: 2023Q2

REPORT INFORMATION
  Report Type: Spontaneous
  Country: VE (occurrence: VE)
  Receive Date: 20221213
  Receipt Date: 20230405
  Transmission Date: 20230721
  Serious: Yes (Hospitalization, Other)
  Sender: FDA-Public Use
  Company Number: VE-002147023-NVSC2022VE286833

PATIENT
  Sex: Female

DRUGS (2)
  1. GLIVEC [Suspect]
     Active Substance: IMATINIB MESYLATE
     Indication: Chronic myeloid leukaemia
     Dosage: 4 DOSAGE FORM
     Route: 065
  2. GLIVEC [Suspect]
     Active Substance: IMATINIB MESYLATE
     Dosage: 400 MG (4 X 100MG)
     Route: 065

REACTIONS (9)
  - Haemoglobin decreased [Unknown]
  - Pneumonia [Unknown]
  - Platelet count increased [Unknown]
  - White blood cell count increased [Unknown]
  - Cytogenetic analysis abnormal [Unknown]
  - Influenza [Unknown]
  - Myalgia [Unknown]
  - Arthralgia [Unknown]
  - Pain in extremity [Unknown]
